FAERS Safety Report 8229571-4 (Version None)
Quarter: 2012Q1

REPORT INFORMATION
  Report Type: 
  Country: None (occurrence: None)
  Receive Date: 20120322
  Receipt Date: 20120316
  Transmission Date: 20120608
  Serious: Yes (Other)
  Sender: FDA-Public Use
  Company Number: PHHY2012US023642

PATIENT
  Age: 45 Year
  Sex: Male

DRUGS (5)
  1. LEVETIRACETAM [Suspect]
     Indication: PROPHYLAXIS
     Dosage: 500 MG, BID
  2. TEMOZOLOMIDE [Concomitant]
     Dosage: 75 MG/M2, UNK
  3. RADIOTHERAPY [Concomitant]
  4. LEVETIRACETAM [Suspect]
     Dosage: 300 MG, PER DAY
  5. DEXAMETHASONE [Concomitant]
     Dosage: 4 MG, PER DAY

REACTIONS (5)
  - NAUSEA [None]
  - DIZZINESS [None]
  - RENAL FAILURE ACUTE [None]
  - TUBULOINTERSTITIAL NEPHRITIS [None]
  - LEUKOCYTURIA [None]
